FAERS Safety Report 5288270-1 (Version None)
Quarter: 2007Q1

REPORT INFORMATION
  Report Type: 
  Country: None (occurrence: None)
  Receive Date: 20070118
  Receipt Date: 20061201
  Transmission Date: 20070707
  Serious: Yes (Other)
  Sender: FDA-Public Use
  Company Number: HQWYE370105DEC06

PATIENT
  Age: 52 Year
  Sex: Male
  Weight: 127.12 kg

DRUGS (1)
  1. ADVIL PM [Suspect]
     Indication: PAIN
     Dosage: 2 CAPLETS DAILY; ORAL
     Route: 048
     Dates: start: 20061124, end: 20061129

REACTIONS (1)
  - DRUG INEFFECTIVE [None]
